FAERS Safety Report 25109575 (Version 1)
Quarter: 2025Q1

REPORT INFORMATION
  Report Type: Spontaneous
  Country: US (occurrence: US)
  Receive Date: 20250323
  Receipt Date: 20250323
  Transmission Date: 20250409
  Serious: Yes (Other)
  Sender: SANOFI AVENTIS
  Company Number: US-SA-2025SA083308

PATIENT
  Sex: Female
  Weight: 61.224 kg

DRUGS (8)
  1. DUPIXENT [Suspect]
     Active Substance: DUPILUMAB
     Indication: Dermatitis atopic
     Dosage: 300 MG, QOW
     Route: 058
     Dates: start: 20250117
  2. DIFLUPREDNATE [Concomitant]
     Active Substance: DIFLUPREDNATE
  3. BROMFENAC SODIUM [Concomitant]
     Active Substance: BROMFENAC SODIUM
  4. WELLBUTRIN XL [Concomitant]
     Active Substance: BUPROPION HYDROCHLORIDE
  5. LATANOPROST [Concomitant]
     Active Substance: LATANOPROST
  6. DORZOLAMIDE HYDROCHLORIDE [Concomitant]
     Active Substance: DORZOLAMIDE HYDROCHLORIDE
  7. PREDNISONE [Concomitant]
     Active Substance: PREDNISONE
  8. ALBUTEROL SULFATE [Concomitant]
     Active Substance: ALBUTEROL SULFATE

REACTIONS (3)
  - Glaucoma [Recovering/Resolving]
  - Macular degeneration [Recovering/Resolving]
  - Myalgia [Not Recovered/Not Resolved]
